FAERS Safety Report 9122007 (Version 2)
Quarter: 2013Q3

REPORT INFORMATION
  Report Type: Spontaneous
  Country: IT (occurrence: IT)
  Receive Date: 20130227
  Receipt Date: 20130912
  Transmission Date: 20140515
  Serious: Yes (Hospitalization)
  Sender: FDA-Public Use
  Company Number: IT-BRISTOL-MYERS SQUIBB COMPANY-17397175

PATIENT
  Age: 86 Year
  Sex: Female

DRUGS (5)
  1. COUMADIN TABS 5 MG [Suspect]
     Indication: ATRIAL FIBRILLATION
     Dosage: COUMADIN DOSAGE , 1/2 TABLET/DIE.
     Route: 048
     Dates: start: 20111130, end: 20121130
  2. ESOMEPRAZOLE SODIUM [Concomitant]
  3. INEGY [Concomitant]
  4. TRIATEC [Concomitant]
  5. LASIX [Concomitant]

REACTIONS (3)
  - Overdose [Recovered/Resolved]
  - Anaemia [Recovered/Resolved]
  - International normalised ratio increased [Recovered/Resolved]
